FAERS Safety Report 20354977 (Version 5)
Quarter: 2022Q3

REPORT INFORMATION
  Report Type: Report from Study
  Country: AR (occurrence: AR)
  Receive Date: 20220120
  Receipt Date: 20220704
  Transmission Date: 20221027
  Serious: Yes (Other)
  Sender: FDA-Public Use
  Company Number: AR-NOVARTISPH-NVSC2021AR258854

PATIENT
  Age: 71 Year
  Sex: Male

DRUGS (3)
  1. COSENTYX [Suspect]
     Active Substance: SECUKINUMAB
     Indication: Psoriasis
     Dosage: 300 MG, QW
     Route: 058
     Dates: start: 20211102
  2. COSENTYX [Suspect]
     Active Substance: SECUKINUMAB
     Dosage: 300 MG, QMO
     Route: 058
  3. METHOTREXATE [Suspect]
     Active Substance: METHOTREXATE
     Indication: Product used for unknown indication
     Dosage: UNK
     Route: 065

REACTIONS (23)
  - Drug-induced liver injury [Unknown]
  - Injection site haemorrhage [Unknown]
  - Psoriasis [Not Recovered/Not Resolved]
  - Skin exfoliation [Recovering/Resolving]
  - Pruritus [Recovering/Resolving]
  - Rash macular [Unknown]
  - Inflammation [Recovering/Resolving]
  - Scab [Recovering/Resolving]
  - Pain [Recovering/Resolving]
  - SARS-CoV-2 test positive [Unknown]
  - Productive cough [Unknown]
  - Pyrexia [Unknown]
  - Unevaluable event [Unknown]
  - Condition aggravated [Recovering/Resolving]
  - Injection site bruising [Unknown]
  - Stress [Unknown]
  - Anxiety [Unknown]
  - Discomfort [Unknown]
  - Rash erythematous [Unknown]
  - Thermal burn [Unknown]
  - Nodule [Unknown]
  - Inappropriate schedule of product administration [Unknown]
  - Incorrect dose administered [Unknown]

NARRATIVE: CASE EVENT DATE: 20211102
